FAERS Safety Report 7460953-4 (Version None)
Quarter: 2011Q2

REPORT INFORMATION
  Report Type: 
  Country: None (occurrence: None)
  Receive Date: 20110505
  Receipt Date: 20110425
  Transmission Date: 20111010
  Serious: Yes (Other)
  Sender: FDA-Public Use
  Company Number: IL-TEVA-279115ISR

PATIENT
  Age: 89 Year
  Sex: Female

DRUGS (4)
  1. TOCOPHEROL CONCENTRATE CAP [Suspect]
  2. PENTOXIFYLLINE [Suspect]
  3. PAMIDRONIC ACID [Suspect]
     Route: 042
  4. ZOLEDRONIC ACID [Suspect]
     Route: 042

REACTIONS (1)
  - OSTEONECROSIS OF JAW [None]
